FAERS Safety Report 8410781-8 (Version None)
Quarter: 2012Q2

REPORT INFORMATION
  Report Type: 
  Country: None (occurrence: None)
  Receive Date: 20120605
  Receipt Date: 20120531
  Transmission Date: 20120825
  Serious: Yes (Death, Other)
  Sender: FDA-Public Use
  Company Number: US-ASTELLAS-2012US004563

PATIENT
  Sex: Male
  Weight: 104 kg

DRUGS (5)
  1. DOCUSATE [Concomitant]
     Indication: CONSTIPATION
     Dosage: 200 MG, UID/QD
     Route: 048
     Dates: start: 20120418, end: 20120507
  2. TARCEVA [Suspect]
     Indication: LUNG NEOPLASM MALIGNANT
     Dosage: 150 MG, UID/QD
     Route: 048
     Dates: start: 20120403, end: 20120411
  3. DEXAMETHASONE [Concomitant]
     Indication: METASTASES TO CENTRAL NERVOUS SYSTEM
     Dosage: 8 MG, UID/QD
     Route: 048
     Dates: start: 20120418, end: 20120507
  4. METOPROLOL TARTRATE [Concomitant]
     Indication: HYPERTENSION
     Dosage: 50 MG, UID/QD
     Route: 048
     Dates: start: 20110525, end: 20120507
  5. ASPIRIN [Concomitant]
     Indication: ARTERIOSCLEROSIS CORONARY ARTERY
     Dosage: 325 MG, UID/QD
     Route: 048
     Dates: start: 20120418, end: 20120507

REACTIONS (2)
  - DEATH [None]
  - NEOPLASM MALIGNANT [None]
